FAERS Safety Report 7069212-5 (Version None)
Quarter: 2010Q4

REPORT INFORMATION
  Report Type: 
  Country: None (occurrence: None)
  Receive Date: 20101028
  Receipt Date: 20101013
  Transmission Date: 20110411
  Serious: Yes (Life-Threatening)
  Sender: FDA-Public Use
  Company Number: B0681374A

PATIENT
  Age: 31 Year
  Sex: Male

DRUGS (5)
  1. CEFTAZIDIME [Suspect]
     Indication: PSEUDOMONAS INFECTION
     Dosage: 3G PER DAY
     Route: 042
     Dates: start: 20100728, end: 20100807
  2. AZITHROMYCIN [Suspect]
     Indication: PSEUDOMONAS INFECTION
     Dosage: 500MG PER DAY
     Route: 048
     Dates: start: 20100728, end: 20100805
  3. FOSFOMYCIN [Suspect]
     Indication: PSEUDOMONAS INFECTION
     Dosage: 3G THREE TIMES PER DAY
     Route: 042
     Dates: start: 20100728, end: 20100805
  4. CIPROFLOXACIN [Concomitant]
     Dosage: 750MG THREE TIMES PER DAY
     Route: 048
     Dates: start: 20100805, end: 20100807
  5. COLISTIN SULFATE [Concomitant]
     Dosage: 1000000IU THREE TIMES PER DAY
     Route: 042
     Dates: start: 20100805, end: 20100807

REACTIONS (3)
  - HEPATIC ENZYME INCREASED [None]
  - HEPATIC FAILURE [None]
  - INTERNATIONAL NORMALISED RATIO INCREASED [None]
